FAERS Safety Report 7852560-6 (Version None)
Quarter: 2011Q4

REPORT INFORMATION
  Report Type: 
  Country: None (occurrence: None)
  Receive Date: 20111026
  Receipt Date: 20111018
  Transmission Date: 20120403
  Serious: Yes (Other)
  Sender: FDA-Public Use
  Company Number: US-ASTRAZENECA-2011SE45296

PATIENT
  Age: 78 Year
  Sex: Female
  Weight: 49.9 kg

DRUGS (2)
  1. SYMBICORT [Suspect]
     Indication: PLEURAL ADHESION
     Dosage: 160/4.5 MCG DAILY
     Route: 055
  2. SYMBICORT [Suspect]
     Dosage: TWO TIMES A DAY
     Route: 055
     Dates: end: 20110101

REACTIONS (4)
  - RETINAL DISORDER [None]
  - VISUAL ACUITY REDUCED [None]
  - MACULOPATHY [None]
  - VISUAL IMPAIRMENT [None]
